FAERS Safety Report 11988193 (Version 1)
Quarter: 2016Q1

REPORT INFORMATION
  Report Type: Spontaneous
  Country: US (occurrence: US)
  Receive Date: 20160202
  Receipt Date: 20160202
  Transmission Date: 20160526
  Serious: No
  Sender: FDA-Public Use
  Company Number: US-PFIZER INC-2016049690

PATIENT
  Age: 50 Year
  Sex: Male

DRUGS (1)
  1. PF-02341066 [Suspect]
     Active Substance: CRIZOTINIB
     Indication: NON-SMALL CELL LUNG CANCER
     Dosage: UNK

REACTIONS (2)
  - Non-small cell lung cancer [Unknown]
  - Disease progression [Unknown]
